FAERS Safety Report 8285672-6 (Version None)
Quarter: 2012Q2

REPORT INFORMATION
  Report Type: 
  Country: None (occurrence: None)
  Receive Date: 20120413
  Receipt Date: 20120404
  Transmission Date: 20120825
  Serious: Yes (Death)
  Sender: FDA-Public Use
  Company Number: DE-BAXTER-2012BH004773

PATIENT
  Sex: Female

DRUGS (5)
  1. PLAVIX [Concomitant]
  2. METRONIDAZOLE [Concomitant]
  3. CEFUROXIME [Concomitant]
  4. KEPPRA [Concomitant]
  5. OLIMEL PERI 2,5 % E EMULSION ZUR INFUSION [Suspect]
     Indication: MALNUTRITION
     Route: 042
     Dates: start: 20120216

REACTIONS (7)
  - EXTRAVASATION [None]
  - SKIN EXFOLIATION [None]
  - ERYTHEMA [None]
  - PAIN [None]
  - OEDEMA PERIPHERAL [None]
  - BLISTER [None]
  - BURNING SENSATION [None]
